FAERS Safety Report 9961344 (Version 3)
Quarter: 2014Q2

REPORT INFORMATION
  Report Type: Spontaneous
  Country: FR (occurrence: FR)
  Receive Date: 20140305
  Receipt Date: 20140507
  Transmission Date: 20141212
  Serious: No
  Sender: FDA-Public Use
  Company Number: FR-JNJFOC-20140300569

PATIENT
  Age: 22 Year
  Sex: Male
  Weight: 57 kg

DRUGS (4)
  1. XEPLION [Suspect]
     Indication: PERSONALITY DISORDER
     Dosage: 21 OR 22-FEB-2014
     Route: 030
     Dates: start: 20140221, end: 20140221
  2. DEPAKOTE [Concomitant]
     Indication: DRUG THERAPY
     Route: 048
  3. TERCIAN [Concomitant]
     Indication: ANXIOLYTIC THERAPY
     Route: 048
  4. AKINETON RETARD [Concomitant]
     Route: 048

REACTIONS (4)
  - Confusional state [Recovered/Resolved]
  - Overdose [Unknown]
  - Malaise [Unknown]
  - Off label use [Unknown]
